FAERS Safety Report 8903778 (Version 1)
Quarter: 2012Q4

REPORT INFORMATION
  Report Type: 
  Country: US (occurrence: US)
  Receive Date: 20121113
  Receipt Date: 20121113
  Transmission Date: 20130627
  Serious: No
  Sender: FDA-Public Use
  Company Number: US-BAYER-2012-117477

PATIENT
  Age: 41 Year
  Sex: Female

DRUGS (1)
  1. GADAVIST [Suspect]
     Indication: MRI BRAIN
     Dosage: 7 ml, ONCE
     Route: 042
     Dates: start: 20121107, end: 20121107

REACTIONS (1)
  - Urticaria [None]
